FAERS Safety Report 8065775-1 (Version None)
Quarter: 2012Q1

REPORT INFORMATION
  Report Type: 
  Country: None (occurrence: None)
  Receive Date: 20120117
  Receipt Date: 20120106
  Transmission Date: 20120608
  Serious: Yes (Life-Threatening)
  Sender: FDA-Public Use
  Company Number: 2012CP000007

PATIENT
  Age: 70 Year
  Sex: Male

DRUGS (3)
  1. ACUPAN [Suspect]
     Dosage: IV
     Route: 042
     Dates: start: 20111221
  2. MORPHINE SULFATE [Suspect]
     Dosage: PO
     Route: 048
     Dates: start: 20111221
  3. ACETAMINOPHEN [Suspect]
     Dosage: IV
     Route: 042
     Dates: start: 20111221

REACTIONS (1)
  - ANAPHYLACTIC SHOCK [None]
